FAERS Safety Report 4303061-3 (Version None)
Quarter: 2004Q1

REPORT INFORMATION
  Report Type: 
  Country: None (occurrence: None)
  Receive Date: 20040224
  Receipt Date: 20040216
  Transmission Date: 20041129
  Serious: Yes (Hospitalization)
  Sender: FDA-Public Use
  Company Number: FR-BRISTOL-MYERS SQUIBB COMPANY-12513297

PATIENT
  Age: 70 Year
  Sex: Female

DRUGS (4)
  1. GLUCOPHAGE [Suspect]
     Indication: DIABETES MELLITUS NON-INSULIN-DEPENDENT
     Route: 048
     Dates: start: 19970501, end: 20030201
  2. MEDIATOR [Concomitant]
     Indication: ESSENTIAL HYPERTENSION
  3. AVLOCARDYL [Concomitant]
     Indication: ESSENTIAL HYPERTENSION
  4. MOPRAL [Concomitant]

REACTIONS (3)
  - FALL [None]
  - HEPATIC CIRRHOSIS [None]
  - PYREXIA [None]
